FAERS Safety Report 24617829 (Version 2)
Quarter: 2024Q4

REPORT INFORMATION
  Report Type: Report from Study
  Country: HU (occurrence: HU)
  Receive Date: 20241114
  Receipt Date: 20241227
  Transmission Date: 20250115
  Serious: Yes (Death, Other)
  Sender: BIOVITRUM
  Company Number: HU-AstraZeneca-CH-00738966A

PATIENT
  Age: 15 Month
  Sex: Male

DRUGS (1)
  1. PALIVIZUMAB [Suspect]
     Active Substance: PALIVIZUMAB
     Indication: Antiviral prophylaxis
     Dosage: ACCORDING TO WEIGHT, MONTHLY
     Route: 030
     Dates: start: 20231110, end: 20240308

REACTIONS (1)
  - Death [Fatal]

NARRATIVE: CASE EVENT DATE: 20241027
